FAERS Safety Report 6421880-4 (Version None)
Quarter: 2009Q4

REPORT INFORMATION
  Report Type: 
  Country: None (occurrence: None)
  Receive Date: 20091029
  Receipt Date: 20091029
  Transmission Date: 20100525
  Serious: Yes (Other)
  Sender: FDA-Public Use
  Company Number: None

PATIENT

DRUGS (1)
  1. ALODRONATE 70 MG TEVA PHARMACEUTICALS [Suspect]
     Indication: OSTEOPOROSIS
     Dosage: 1 WEEKLY ONCE WEEKLY
     Dates: start: 20091002, end: 20091022

REACTIONS (3)
  - EYE IRRITATION [None]
  - EYE PAIN [None]
  - VISUAL IMPAIRMENT [None]
